FAERS Safety Report 5269939-1 (Version None)
Quarter: 2007Q1

REPORT INFORMATION
  Report Type: 
  Country: None (occurrence: None)
  Receive Date: 20070320
  Receipt Date: 20070309
  Transmission Date: 20070707
  Serious: Yes (Other)
  Sender: FDA-Public Use
  Company Number: DE-AVENTIS-200710666DE

PATIENT
  Sex: Female

DRUGS (1)
  1. TAXOTERE [Suspect]
     Indication: BREAST CANCER
     Dosage: DOSE: NOT REPORTED
     Route: 042
     Dates: start: 20070101, end: 20070101

REACTIONS (2)
  - DYSPNOEA [None]
  - PULMONARY VASCULITIS [None]
